FAERS Safety Report 8621948-8 (Version None)
Quarter: 2012Q3

REPORT INFORMATION
  Report Type: 
  Country: None (occurrence: None)
  Receive Date: 20120822
  Receipt Date: 20120822
  Transmission Date: 20120928
  Serious: Yes (Death)
  Sender: FDA-Public Use
  Company Number: None

PATIENT
  Sex: Male
  Weight: 72.5755 kg

DRUGS (2)
  1. PREDNISOLONE [Concomitant]
  2. ENBREL [Suspect]
     Indication: PSORIASIS
     Dates: start: 20040201, end: 20040401

REACTIONS (1)
  - STEVENS-JOHNSON SYNDROME [None]
